FAERS Safety Report 5952987-3 (Version None)
Quarter: 2008Q4

REPORT INFORMATION
  Report Type: 
  Country: None (occurrence: None)
  Receive Date: 20081114
  Receipt Date: 20081103
  Transmission Date: 20090506
  Serious: Yes (Other)
  Sender: FDA-Public Use
  Company Number: US-AVENTIS-200817697US

PATIENT
  Sex: Male

DRUGS (5)
  1. KETEK [Suspect]
     Indication: SINUSITIS
     Dosage: DOSE: UNK
     Dates: start: 20060531, end: 20060101
  2. DOXYCYCLINE [Concomitant]
     Dosage: DOSE: UNK
  3. CVS GINSENG STRENGTH [Concomitant]
     Dosage: DOSE: UNK
  4. GINKOBA [Concomitant]
     Dosage: DOSE: UNK
  5. MULTI-VITAMINS [Concomitant]
     Dosage: DOSE: UNK

REACTIONS (9)
  - ABDOMINAL TENDERNESS [None]
  - ALANINE AMINOTRANSFERASE INCREASED [None]
  - ASPARTATE AMINOTRANSFERASE INCREASED [None]
  - CHROMATURIA [None]
  - DIARRHOEA [None]
  - FAECES PALE [None]
  - FATIGUE [None]
  - HEPATITIS [None]
  - NAUSEA [None]
